FAERS Safety Report 9092120 (Version 1)
Quarter: 2013Q1

REPORT INFORMATION
  Report Type: Spontaneous
  Country: KR (occurrence: KR)
  Receive Date: 20130201
  Receipt Date: 20130201
  Transmission Date: 20140127
  Serious: Yes (Hospitalization, Other)
  Sender: FDA-Public Use
  Company Number: KR-JNJFOC-20130117002

PATIENT
  Age: 44 Year
  Sex: Male
  Weight: 80 kg

DRUGS (6)
  1. ABCIXIMAB [Suspect]
     Indication: PERCUTANEOUS CORONARY INTERVENTION
     Dosage: FOLLOWED BY 0.6 MG PER HOUR, DURATION 12 HRS
     Route: 042
  2. ABCIXIMAB [Suspect]
     Indication: PERCUTANEOUS CORONARY INTERVENTION
     Route: 042
  3. ENOXAPARIN [Concomitant]
     Route: 065
  4. CLOPIDOGREL [Concomitant]
     Route: 065
  5. ENOXAPARIN [Concomitant]
     Route: 065
  6. UNFRACTIONATED HEPARIN [Concomitant]
     Route: 065

REACTIONS (2)
  - Mediastinal haematoma [Recovered/Resolved]
  - Sternal fracture [Unknown]
